FAERS Safety Report 22086305 (Version 1)
Quarter: 2023Q1

REPORT INFORMATION
  Report Type: Report from Study
  Country: BR (occurrence: BR)
  Receive Date: 20230310
  Receipt Date: 20230310
  Transmission Date: 20230418
  Serious: Yes (Hospitalization)
  Sender: FDA-Public Use
  Company Number: BR-BIOGEN-2022BI01175840

PATIENT
  Age: 21 Year
  Sex: Female
  Weight: 95 kg

DRUGS (2)
  1. TECFIDERA [Suspect]
     Active Substance: DIMETHYL FUMARATE
     Indication: Multiple sclerosis
     Route: 050
     Dates: start: 20220301, end: 202206
  2. TECFIDERA [Suspect]
     Active Substance: DIMETHYL FUMARATE
     Indication: Multiple sclerosis
     Route: 050
     Dates: start: 202206

REACTIONS (2)
  - Multiple sclerosis relapse [Recovered/Resolved]
  - Bilirubin conjugated abnormal [Not Recovered/Not Resolved]

NARRATIVE: CASE EVENT DATE: 20220601
